FAERS Safety Report 10663953 (Version 3)
Quarter: 2015Q1

REPORT INFORMATION
  Report Type: Spontaneous
  Country: US (occurrence: US)
  Receive Date: 20141219
  Receipt Date: 20150109
  Transmission Date: 20150720
  Serious: Yes (Hospitalization, Other)
  Sender: FDA-Public Use
  Company Number: CHPA2014US016681

PATIENT
  Sex: Female

DRUGS (1)
  1. MAALOX ANTACID [Suspect]
     Active Substance: ALUMINUM HYDROXIDE\DIMETHICONE\MAGNESIUM HYDROXIDE
     Indication: DYSPEPSIA
     Dosage: UNK
     Route: 048

REACTIONS (4)
  - Colon cancer [Recovering/Resolving]
  - Hearing impaired [Not Recovered/Not Resolved]
  - Hip fracture [Recovered/Resolved]
  - Gastric disorder [Unknown]
